FAERS Safety Report 6072511-7 (Version None)
Quarter: 2009Q1

REPORT INFORMATION
  Report Type: 
  Country: None (occurrence: None)
  Receive Date: 20090210
  Receipt Date: 20090129
  Transmission Date: 20090719
  Serious: Yes (Hospitalization)
  Sender: FDA-Public Use
  Company Number: US-SANOFI-SYNTHELABO-A03200900461

PATIENT
  Age: 75 Year
  Sex: Female

DRUGS (6)
  1. FLUOROURACIL [Suspect]
     Indication: COLON CANCER
     Route: 065
  2. LEUCOVORIN CALCIUM [Suspect]
     Indication: COLON CANCER
     Route: 065
  3. ELOXATIN [Suspect]
     Indication: COLON CANCER
     Route: 042
  4. CETUXIMAB [Suspect]
     Indication: COLON CANCER
     Dosage: UNK
     Route: 065
  5. IRINOTECAN HCL [Suspect]
     Indication: COLON CANCER
     Dosage: UNK
     Route: 065
  6. CAPECITABINE [Suspect]
     Indication: COLON CANCER
     Dosage: UNK
     Route: 065

REACTIONS (8)
  - BLOOD CREATINE PHOSPHOKINASE INCREASED [None]
  - CORONARY ARTERY DISEASE [None]
  - DISEASE PROGRESSION [None]
  - DYSPNOEA [None]
  - EJECTION FRACTION DECREASED [None]
  - ELECTROCARDIOGRAM T WAVE INVERSION [None]
  - HYPERSENSITIVITY [None]
  - STRESS CARDIOMYOPATHY [None]
